FAERS Safety Report 7088856-8 (Version None)
Quarter: 2010Q4

REPORT INFORMATION
  Report Type: 
  Country: None (occurrence: None)
  Receive Date: 20101108
  Receipt Date: 20101101
  Transmission Date: 20110411
  Serious: Yes (Other)
  Sender: FDA-Public Use
  Company Number: GR-PFIZER INC-2010139708

PATIENT
  Age: 46 Year
  Sex: Female

DRUGS (4)
  1. METHYLPREDNISOLONE [Suspect]
     Indication: ASTHMA
     Dosage: UNK
  2. SALBUTAMOL [Concomitant]
     Dosage: UNK
  3. OMEPRAZOLE [Concomitant]
     Dosage: UNK
  4. CALCIUM [Concomitant]
     Dosage: UNK

REACTIONS (5)
  - CUSHINGOID [None]
  - DEPRESSED MOOD [None]
  - DRUG INEFFECTIVE [None]
  - HYPERTHYROIDISM [None]
  - INTRA-UTERINE DEATH [None]
